FAERS Safety Report 23918628 (Version 1)
Quarter: 2024Q2

REPORT INFORMATION
  Report Type: Spontaneous
  Country: GB (occurrence: GB)
  Receive Date: 20240530
  Receipt Date: 20240530
  Transmission Date: 20240716
  Serious: Yes (Other)
  Sender: FDA-Public Use
  Company Number: GB-ADVANZ PHARMA-202405004197

PATIENT
  Sex: Female

DRUGS (1)
  1. METHENAMINE [Suspect]
     Active Substance: METHENAMINE
     Indication: Prophylaxis urinary tract infection
     Dosage: UNK

REACTIONS (2)
  - Cerebrovascular accident [Unknown]
  - Product use complaint [Unknown]
